FAERS Safety Report 20632879 (Version 3)
Quarter: 2022Q3

REPORT INFORMATION
  Report Type: Report from Study
  Country: CA (occurrence: CA)
  Receive Date: 20220324
  Receipt Date: 20220712
  Transmission Date: 20221027
  Serious: Yes (Other)
  Sender: FDA-Public Use
  Company Number: CA-GLAXOSMITHKLINE-CA2022049335

PATIENT

DRUGS (1)
  1. MEPOLIZUMAB [Suspect]
     Active Substance: MEPOLIZUMAB
     Indication: Asthma
     Dosage: 100 MG, Z EVERY 4 WEEKS
     Route: 058
     Dates: start: 20200902

REACTIONS (9)
  - Partial seizures [Unknown]
  - Pneumonia [Unknown]
  - Cough [Unknown]
  - Gingivitis [Recovered/Resolved]
  - Fall [Recovered/Resolved]
  - Tissue injury [Recovered/Resolved]
  - Neuralgia [Unknown]
  - Purulent discharge [Unknown]
  - Atelectasis [Unknown]

NARRATIVE: CASE EVENT DATE: 20220228
